FAERS Safety Report 10218442 (Version 1)
Quarter: 2014Q2

REPORT INFORMATION
  Report Type: Spontaneous
  Country: US (occurrence: US)
  Receive Date: 20140605
  Receipt Date: 20140605
  Transmission Date: 20141212
  Serious: No
  Sender: FDA-Public Use
  Company Number: PHEH2014US010889

PATIENT
  Sex: Female

DRUGS (7)
  1. TASIGNA [Suspect]
     Dosage: 300 MG, BID
  2. FOSINOPRIL [Concomitant]
     Dosage: UNK UKN, UNK
  3. VIVELLE-DOT [Concomitant]
     Dosage: 0.1 MG, 2 TIMES A WEEK
  4. CELEBREX [Concomitant]
     Dosage: 200 MG, NOT EVERY DAY
  5. TOPAMAX MIGRAENE [Concomitant]
     Indication: MIGRAINE
     Dosage: 200 MG
  6. OMEPRAZOLE AND SODIUM BICARBONATE [Concomitant]
     Indication: REFLUX GASTRITIS
     Dosage: 400 MG
  7. ATIVAN [Concomitant]
     Indication: SLEEP DISORDER
     Dosage: UNK UKN, UNK

REACTIONS (3)
  - Drug interaction [Unknown]
  - Incorrect drug administration duration [Unknown]
  - Dyspepsia [Unknown]
